FAERS Safety Report 11838869 (Version 4)
Quarter: 2016Q2

REPORT INFORMATION
  Report Type: Report from Study
  Country: US (occurrence: US)
  Receive Date: 20151215
  Receipt Date: 20160408
  Transmission Date: 20160815
  Serious: Yes (Other)
  Sender: FDA-Public Use
  Company Number: US-ROCHE-1600792

PATIENT
  Sex: Male

DRUGS (2)
  1. PIRFENIDONE [Suspect]
     Active Substance: PIRFENIDONE
     Indication: IDIOPATHIC PULMONARY FIBROSIS
     Route: 048
     Dates: start: 20150319
  2. PIRFENIDONE [Suspect]
     Active Substance: PIRFENIDONE
     Dosage: 2-3 CAPSULE
     Route: 048
     Dates: start: 20150807

REACTIONS (5)
  - Neuroendocrine carcinoma of the skin [Unknown]
  - Weight decreased [Unknown]
  - Gastric disorder [Unknown]
  - Drug dose omission [Unknown]
  - Decreased appetite [Unknown]
